FAERS Safety Report 6930721-8 (Version None)
Quarter: 2010Q3

REPORT INFORMATION
  Report Type: 
  Country: None (occurrence: None)
  Receive Date: 20100818
  Receipt Date: 20100806
  Transmission Date: 20110219
  Serious: Yes (Other)
  Sender: FDA-Public Use
  Company Number: CO-PFIZER INC-2010100394

PATIENT
  Age: 54 Year
  Sex: Female

DRUGS (5)
  1. LYRICA [Suspect]
     Indication: FIBROMYALGIA
     Dosage: 75 MG, 2X/DAY
     Dates: start: 20100601
  2. LYRICA [Suspect]
     Indication: RADICULOPATHY
  3. TIZANIDINE [Concomitant]
  4. TRIFLUOPERAZINE [Concomitant]
  5. AMITRIPTYLINE [Concomitant]

REACTIONS (1)
  - UTERINE HAEMORRHAGE [None]
